FAERS Safety Report 23403978 (Version 1)
Quarter: 2024Q1

REPORT INFORMATION
  Report Type: Spontaneous
  Country: US (occurrence: US)
  Receive Date: 20240116
  Receipt Date: 20240116
  Transmission Date: 20240410
  Serious: No
  Sender: FDA-Public Use
  Company Number: US-SANOFI-01897787

PATIENT
  Age: 54 Year
  Sex: Female

DRUGS (1)
  1. LANTUS SOLOSTAR [Suspect]
     Active Substance: INSULIN GLARGINE
     Indication: Diabetes mellitus
     Dosage: 28 U, QD AND DRUG TREATMENT DURATION: LESS THAN 1 MONTH
     Dates: start: 20231224

REACTIONS (1)
  - Product dispensing issue [Unknown]

NARRATIVE: CASE EVENT DATE: 20231224
